FAERS Safety Report 26014025 (Version 2)
Quarter: 2025Q4

REPORT INFORMATION
  Report Type: Spontaneous
  Country: EU (occurrence: EU)
  Receive Date: 20251108
  Receipt Date: 20251112
  Transmission Date: 20260118
  Serious: Yes (Life-Threatening, Hospitalization, Other)
  Sender: AUROBINDO
  Company Number: EU-009507513-2309290

PATIENT
  Age: 74 Year
  Sex: Male

DRUGS (6)
  1. DAPTOMYCIN [Suspect]
     Active Substance: DAPTOMYCIN
     Indication: Endocarditis
     Dosage: 10 MILLIGRAM/KILOGRAM, ONCE A DAY
     Route: 065
  2. DAPTOMYCIN [Suspect]
     Active Substance: DAPTOMYCIN
     Indication: Endocarditis
  3. CEFTRIAXONE [Concomitant]
     Active Substance: CEFTRIAXONE
     Indication: Endocarditis
     Dosage: UNK
     Route: 065
  4. CEFTRIAXONE [Concomitant]
     Active Substance: CEFTRIAXONE
     Indication: Endocarditis
  5. AMPICILLIN [Concomitant]
     Active Substance: AMPICILLIN
     Indication: Endocarditis
     Dosage: UNK
     Route: 065
  6. AMPICILLIN [Concomitant]
     Active Substance: AMPICILLIN
     Indication: Endocarditis

REACTIONS (3)
  - Eosinophilic pneumonia acute [Recovered/Resolved]
  - Acute respiratory distress syndrome [Recovered/Resolved]
  - Product use in unapproved indication [Unknown]
